FAERS Safety Report 16142253 (Version 1)
Quarter: 2019Q2

REPORT INFORMATION
  Report Type: Spontaneous
  Country: US (occurrence: US)
  Receive Date: 20190401
  Receipt Date: 20190401
  Transmission Date: 20190711
  Serious: No
  Sender: FDA-Public Use
  Company Number: US-SA-2019SA087382

PATIENT
  Age: 68 Year
  Sex: Male

DRUGS (2)
  1. VELPHORO [Suspect]
     Active Substance: FERRIC OXYHYDROXIDE
  2. RENVELA [Suspect]
     Active Substance: SEVELAMER CARBONATE
     Dosage: 2.4 G WITH MEALS

REACTIONS (5)
  - Chest discomfort [Unknown]
  - Breath odour [Unknown]
  - Faeces discoloured [Unknown]
  - Blood phosphorus increased [Unknown]
  - Flatulence [Unknown]
